FAERS Safety Report 8554536-2 (Version None)
Quarter: 2012Q3

REPORT INFORMATION
  Report Type: 
  Country: None (occurrence: None)
  Receive Date: 20120731
  Receipt Date: 20120723
  Transmission Date: 20120928
  Serious: Yes (Death, Hospitalization, Other)
  Sender: FDA-Public Use
  Company Number: US-ELI_LILLY_AND_COMPANY-US201106003243

PATIENT
  Sex: Female

DRUGS (23)
  1. FORTEO [Suspect]
     Indication: OSTEOPOROSIS
     Dosage: 20 UG, QD
     Route: 065
     Dates: start: 20110501
  2. FORTEO [Suspect]
     Dosage: 20 UG, QD
     Route: 065
  3. ALLOPURINOL [Concomitant]
     Dosage: 150 MG, QD
  4. METOPROLOL TARTRATE [Concomitant]
     Dosage: 50 MG, UNK
  5. FORTEO [Suspect]
     Dosage: 20 UG, QD
     Route: 065
  6. SIMVASTATIN [Concomitant]
     Dosage: 40 MG, UNK
  7. AMLODIPINE [Concomitant]
     Dosage: 10 MG, UNK
  8. ARICEPT [Concomitant]
     Dosage: 10 MG, UNK
  9. FORTEO [Suspect]
     Dosage: 20 UG, QD
     Route: 065
  10. VESICARE [Concomitant]
     Dosage: 10 MG, UNK
  11. ASPIRIN [Concomitant]
     Dosage: 81 MG, QD
  12. STOOL SOFTENER [Concomitant]
     Dosage: 100 MG, UNK
  13. VITAMIN B-12 [Concomitant]
     Dosage: 2000 MG, QD
  14. FERROUS SULFATE TAB [Concomitant]
     Dosage: 125 MG, QD
  15. HYOSCYAMINE [Concomitant]
     Dosage: 2 DF, QD
  16. PLAVIX [Concomitant]
     Dosage: 75 MG, UNK
  17. ISOSORBIDE [Concomitant]
     Dosage: 60 MG, BID
  18. FORTEO [Suspect]
     Dosage: 20 UG, QD
     Route: 065
  19. FORTEO [Suspect]
     Dosage: 20 UG, QD
     Route: 065
  20. ALPRAZOLAM [Concomitant]
     Dosage: 25 MG, UNK
  21. LEVOTHYROXINE SODIUM [Concomitant]
     Dosage: 100 MG, QD
  22. DEXLANSOPRAZOLE [Concomitant]
     Dosage: 60 MG, UNK
  23. VITAMIN D [Concomitant]
     Dosage: 1000 IU, QD

REACTIONS (10)
  - MALAISE [None]
  - ILL-DEFINED DISORDER [None]
  - BACK PAIN [None]
  - NAUSEA [None]
  - FLATULENCE [None]
  - DEATH [None]
  - MYOCARDIAL INFARCTION [None]
  - ERUCTATION [None]
  - CHEST PAIN [None]
  - DYSPEPSIA [None]
